FAERS Safety Report 7202467-2 (Version None)
Quarter: 2010Q4

REPORT INFORMATION
  Report Type: 
  Country: None (occurrence: None)
  Receive Date: 20101229
  Receipt Date: 20101222
  Transmission Date: 20110411
  Serious: Yes (Hospitalization)
  Sender: FDA-Public Use
  Company Number: B0690518A

PATIENT
  Age: 31 Year
  Sex: Male

DRUGS (1)
  1. IMIJECT [Suspect]
     Indication: CLUSTER HEADACHE
     Dosage: 6MG SEE DOSAGE TEXT
     Route: 058
     Dates: start: 20080101, end: 20101201

REACTIONS (6)
  - ASTHENIA [None]
  - HYPERHIDROSIS [None]
  - INCORRECT DOSE ADMINISTERED [None]
  - INCORRECT DRUG ADMINISTRATION RATE [None]
  - MEDICATION ERROR [None]
  - VOMITING [None]
